FAERS Safety Report 5771901-7 (Version None)
Quarter: 2008Q2

REPORT INFORMATION
  Report Type: 
  Country: None (occurrence: None)
  Receive Date: 20080613
  Receipt Date: 20080612
  Transmission Date: 20081010
  Serious: Yes (Other)
  Sender: FDA-Public Use
  Company Number: D0057390A

PATIENT
  Age: 33 Year
  Sex: Male
  Weight: 78 kg

DRUGS (1)
  1. VIANI [Suspect]
     Dosage: 550MCG TWICE PER DAY
     Route: 055
     Dates: start: 20080408, end: 20080429

REACTIONS (7)
  - ARTHRALGIA [None]
  - EYE SWELLING [None]
  - HYPERTHYROIDISM [None]
  - MALAISE [None]
  - SWELLING FACE [None]
  - TACHYCARDIA [None]
  - WEIGHT DECREASED [None]
